FAERS Safety Report 5123358-7 (Version None)
Quarter: 2006Q4

REPORT INFORMATION
  Report Type: 
  Country: None (occurrence: None)
  Receive Date: 20061005
  Receipt Date: 20060928
  Transmission Date: 20070319
  Serious: No
  Sender: FDA-Public Use
  Company Number: FR-2006-016370

PATIENT
  Age: 48 Year
  Sex: Female
  Weight: 73 kg

DRUGS (1)
  1. MIRENA [Suspect]
     Dosage: 20 UG/DAY, CONT, INTRA-UTERINE
     Route: 015
     Dates: end: 20030129

REACTIONS (5)
  - DEVICE BREAKAGE [None]
  - ENDOMETRIAL DISORDER [None]
  - IUCD COMPLICATION [None]
  - IUD MIGRATION [None]
  - PAIN [None]
